FAERS Safety Report 10686506 (Version 2)
Quarter: 2015Q1

REPORT INFORMATION
  Report Type: Spontaneous
  Country: AT (occurrence: AT)
  Receive Date: 20150101
  Receipt Date: 20150210
  Transmission Date: 20150720
  Serious: Yes (Other)
  Sender: FDA-Public Use
  Company Number: AT-ASTRAZENECA-2014SE98729

PATIENT
  Sex: Female

DRUGS (5)
  1. TAXOTERE [Concomitant]
     Active Substance: DOCETAXEL
     Dosage: 3 CYCLES
     Dates: end: 200709
  2. FASLODEX [Suspect]
     Active Substance: FULVESTRANT
     Route: 030
  3. ZOLADEX [Suspect]
     Active Substance: GOSERELIN ACETATE
     Indication: BREAST CANCER
     Route: 058
  4. NOLVADEX [Suspect]
     Active Substance: TAMOXIFEN CITRATE
     Indication: BREAST CANCER
     Route: 048
  5. FEC [Concomitant]
     Dosage: 3 CYCLES

REACTIONS (6)
  - Metastases to peritoneum [Unknown]
  - Constipation [Unknown]
  - Tumour marker increased [Unknown]
  - Abdominal pain [Unknown]
  - Metastases to ovary [Unknown]
  - Nausea [Unknown]

NARRATIVE: CASE EVENT DATE: 201011
